FAERS Safety Report 4873841-4 (Version None)
Quarter: 2005Q4

REPORT INFORMATION
  Report Type: 
  Country: None (occurrence: None)
  Receive Date: 20051201
  Receipt Date: 20050809
  Transmission Date: 20060501
  Serious: No
  Sender: FDA-Public Use
  Company Number: 2005PV000980

PATIENT
  Age: 61 Year
  Sex: Female
  Weight: 92.5338 kg

DRUGS (13)
  1. BYETTA [Suspect]
     Indication: DIABETES MELLITUS NON-INSULIN-DEPENDENT
     Dosage: 5 MCG; BID; SC
     Route: 058
     Dates: start: 20050727
  2. GLUCOPHAGE [Concomitant]
  3. ZOCOR [Concomitant]
  4. BENICAR [Concomitant]
  5. NEURONTIN [Concomitant]
  6. THEOPHYLLINE [Concomitant]
  7. ADVAIR DISKUS 250/50 [Concomitant]
  8. SPIRIVA [Concomitant]
  9. LIBRAX [Concomitant]
  10. PROTONIX [Concomitant]
  11. SINGULAIR [Concomitant]
  12. LEXAPRO [Concomitant]
  13. SYNTHROID [Concomitant]

REACTIONS (3)
  - DIARRHOEA [None]
  - DIZZINESS [None]
  - FLATULENCE [None]
